FAERS Safety Report 8338326-1 (Version None)
Quarter: 2012Q1

REPORT INFORMATION
  Report Type: 
  Country: None (occurrence: None)
  Receive Date: 20120329
  Receipt Date: 20090119
  Transmission Date: 20120608
  Serious: Yes (Hospitalization)
  Sender: FDA-Public Use
  Company Number: PHEH2008US10570

PATIENT
  Age: 39 Year
  Sex: Male
  Weight: 93 kg

DRUGS (4)
  1. LAMISIL [Suspect]
     Dosage: 250 MG, QD, ORAL
     Route: 048
     Dates: start: 20080911, end: 20081106
  2. ACIPHEX [Concomitant]
  3. FLECAINIDE ACETATE [Concomitant]
  4. METOPROLOL TARTRATE [Concomitant]

REACTIONS (2)
  - VOMITING [None]
  - NAUSEA [None]
